FAERS Safety Report 6472822-7 (Version None)
Quarter: 2009Q4

REPORT INFORMATION
  Report Type: 
  Country: None (occurrence: None)
  Receive Date: 20091201
  Receipt Date: 20090703
  Transmission Date: 20100525
  Serious: Yes (Other)
  Sender: FDA-Public Use
  Company Number: 2009AP002707

PATIENT
  Age: 70 Year
  Sex: Male

DRUGS (10)
  1. OMEPRAZOLE [Suspect]
     Dosage: UNKNOWN; PO; UNKNOWN
     Route: 048
  2. LEVETIRACETAM [Suspect]
     Indication: PROPHYLAXIS
     Dosage: 500 MG; UNKNOWN; PO; BID
     Route: 048
  3. ALLOPURINOL [Concomitant]
     Dosage: 100 MG; UNKNOWN; PO; QD
     Route: 048
  4. HYDROCORTONE [Concomitant]
  5. MAGNESIUM HYDROXIDE TAB [Concomitant]
  6. SENNA (SENNA) [Concomitant]
  7. NICOTINAMIDE [Concomitant]
  8. PYRIDOXINE HYDROCHLORIDE (PYRIDOXINE HYDROCHLORIDE) [Concomitant]
  9. RIBOFLAVIN (RIBOFLAVIN) [Concomitant]
  10. THIAMINE HCL [Concomitant]

REACTIONS (1)
  - ALANINE AMINOTRANSFERASE INCREASED [None]
